FAERS Safety Report 9379480 (Version 1)
Quarter: 2013Q3

REPORT INFORMATION
  Report Type: Other
  Country: GB (occurrence: GB)
  Receive Date: 20130702
  Receipt Date: 20130702
  Transmission Date: 20140515
  Serious: Yes (Other)
  Sender: FDA-Public Use
  Company Number: GB-PERRIGO-13GB006789

PATIENT
  Age: 47 Year
  Sex: Male

DRUGS (5)
  1. NAPROXEN 250MG 16028/0144 [Suspect]
     Indication: BACK PAIN
     Dosage: 500 MG, BID
     Route: 048
     Dates: start: 20130604, end: 20130608
  2. IBUPROFEN [Concomitant]
     Indication: BACK PAIN
     Dosage: 200 MG, PRN
     Route: 048
  3. OMEPRAZOLE [Concomitant]
     Indication: PRODUCT USED FOR UNKNOWN INDICATION
     Dosage: 20 MG, UNK
     Route: 048
     Dates: start: 20130604
  4. SYMBICORT [Concomitant]
     Indication: ASTHMA
     Dosage: UNK
     Route: 055
  5. TERBUTALINE [Concomitant]
     Indication: ASTHMA
     Dosage: UNK
     Route: 055

REACTIONS (1)
  - Paraesthesia [Recovered/Resolved]
